FAERS Safety Report 25564261 (Version 1)
Quarter: 2025Q3

REPORT INFORMATION
  Report Type: Spontaneous
  Country: US (occurrence: US)
  Receive Date: 20250716
  Receipt Date: 20250716
  Transmission Date: 20251021
  Serious: Yes (Hospitalization)
  Sender: MYLAN
  Company Number: US-MYLANLABS-2025M1057829

PATIENT
  Age: 38 Year
  Sex: Female

DRUGS (28)
  1. METHOTREXATE [Suspect]
     Active Substance: METHOTREXATE
     Indication: Pemphigus
     Dosage: 20 MILLIGRAM, QW
  2. METHOTREXATE [Suspect]
     Active Substance: METHOTREXATE
     Dosage: 20 MILLIGRAM, QW
     Route: 065
  3. METHOTREXATE [Suspect]
     Active Substance: METHOTREXATE
     Dosage: 20 MILLIGRAM, QW
     Route: 065
  4. METHOTREXATE [Suspect]
     Active Substance: METHOTREXATE
     Dosage: 20 MILLIGRAM, QW
  5. DAPSONE [Suspect]
     Active Substance: DAPSONE
     Indication: Pemphigus
     Dosage: 75 MILLIGRAM, QD
  6. DAPSONE [Suspect]
     Active Substance: DAPSONE
     Dosage: 75 MILLIGRAM, QD
     Route: 065
  7. DAPSONE [Suspect]
     Active Substance: DAPSONE
     Dosage: 75 MILLIGRAM, QD
     Route: 065
  8. DAPSONE [Suspect]
     Active Substance: DAPSONE
     Dosage: 75 MILLIGRAM, QD
  9. CYCLOPHOSPHAMIDE [Suspect]
     Active Substance: CYCLOPHOSPHAMIDE
     Indication: Pemphigus
     Dosage: 75 MILLIGRAM, QD
  10. CYCLOPHOSPHAMIDE [Suspect]
     Active Substance: CYCLOPHOSPHAMIDE
     Dosage: 75 MILLIGRAM, QD
     Route: 065
  11. CYCLOPHOSPHAMIDE [Suspect]
     Active Substance: CYCLOPHOSPHAMIDE
     Dosage: 75 MILLIGRAM, QD
     Route: 065
  12. CYCLOPHOSPHAMIDE [Suspect]
     Active Substance: CYCLOPHOSPHAMIDE
     Dosage: 75 MILLIGRAM, QD
  13. AZATHIOPRINE [Suspect]
     Active Substance: AZATHIOPRINE
     Indication: Pemphigus
     Dosage: 100 MILLIGRAM, QD
  14. AZATHIOPRINE [Suspect]
     Active Substance: AZATHIOPRINE
     Dosage: 100 MILLIGRAM, QD
     Route: 065
  15. AZATHIOPRINE [Suspect]
     Active Substance: AZATHIOPRINE
     Dosage: 100 MILLIGRAM, QD
     Route: 065
  16. AZATHIOPRINE [Suspect]
     Active Substance: AZATHIOPRINE
     Dosage: 100 MILLIGRAM, QD
  17. MYCOPHENOLATE MOFETIL [Concomitant]
     Active Substance: MYCOPHENOLATE MOFETIL
     Indication: Pemphigus
     Dosage: 1500 MILLIGRAM, BID
  18. MYCOPHENOLATE MOFETIL [Concomitant]
     Active Substance: MYCOPHENOLATE MOFETIL
     Dosage: 1500 MILLIGRAM, BID
  19. MYCOPHENOLATE MOFETIL [Concomitant]
     Active Substance: MYCOPHENOLATE MOFETIL
     Dosage: 1500 MILLIGRAM, BID
     Route: 065
  20. MYCOPHENOLATE MOFETIL [Concomitant]
     Active Substance: MYCOPHENOLATE MOFETIL
     Dosage: 1500 MILLIGRAM, BID
     Route: 065
  21. MYCOPHENOLATE MOFETIL [Concomitant]
     Active Substance: MYCOPHENOLATE MOFETIL
     Dosage: 1.5 GRAM, QD
  22. MYCOPHENOLATE MOFETIL [Concomitant]
     Active Substance: MYCOPHENOLATE MOFETIL
     Dosage: 1.5 GRAM, QD
  23. MYCOPHENOLATE MOFETIL [Concomitant]
     Active Substance: MYCOPHENOLATE MOFETIL
     Dosage: 1.5 GRAM, QD
     Route: 048
  24. MYCOPHENOLATE MOFETIL [Concomitant]
     Active Substance: MYCOPHENOLATE MOFETIL
     Dosage: 1.5 GRAM, QD
     Route: 048
  25. Immunoglobulin [Concomitant]
     Indication: Pemphigus
     Dosage: 2 GRAM PER KILOGRAM, Q28D (EVERY 4 WEEKS) (RECEIVED IMMUNE-GLOBULIN 2G/KG)
  26. Immunoglobulin [Concomitant]
     Dosage: 2 GRAM PER KILOGRAM, Q28D (EVERY 4 WEEKS) (RECEIVED IMMUNE-GLOBULIN 2G/KG)
     Route: 042
  27. Immunoglobulin [Concomitant]
     Dosage: 2 GRAM PER KILOGRAM, Q28D (EVERY 4 WEEKS) (RECEIVED IMMUNE-GLOBULIN 2G/KG)
     Route: 042
  28. Immunoglobulin [Concomitant]
     Dosage: 2 GRAM PER KILOGRAM, Q28D (EVERY 4 WEEKS) (RECEIVED IMMUNE-GLOBULIN 2G/KG)

REACTIONS (2)
  - Drug ineffective for unapproved indication [Unknown]
  - Off label use [Unknown]
